FAERS Safety Report 10462735 (Version 3)
Quarter: 2014Q4

REPORT INFORMATION
  Report Type: Spontaneous
  Country: JP (occurrence: JP)
  Receive Date: 20140918
  Receipt Date: 20141015
  Transmission Date: 20150528
  Serious: Yes (Hospitalization)
  Sender: FDA-Public Use
  Company Number: JP-EISAI MEDICAL RESEARCH-E2090-03497-SPO-JP

PATIENT
  Age: 61 Year
  Sex: Male

DRUGS (5)
  1. EXCEGRAN [Suspect]
     Active Substance: ZONISAMIDE
     Indication: CONVULSION PROPHYLAXIS
     Dosage: 200 MG
     Route: 048
     Dates: start: 20140711, end: 20140804
  2. TRANEXAMIC [Concomitant]
     Indication: CEREBRAL HAEMORRHAGE
     Dates: start: 20140714, end: 20140716
  3. ADONA [Concomitant]
     Active Substance: CARBAZOCHROME SODIUM SULFONATE
     Indication: CEREBRAL HAEMORRHAGE
     Dates: start: 20140714, end: 20140716
  4. PRIMPERAN [Concomitant]
     Active Substance: METOCLOPRAMIDE HYDROCHLORIDE
     Indication: CEREBRAL HAEMORRHAGE
     Dates: start: 20140714, end: 20140716
  5. GLYCERIN F [Concomitant]
     Indication: CEREBRAL HAEMORRHAGE
     Dates: start: 20140714, end: 20140727

REACTIONS (2)
  - Drug reaction with eosinophilia and systemic symptoms [Recovering/Resolving]
  - Liver disorder [Recovering/Resolving]

NARRATIVE: CASE EVENT DATE: 20140804
